FAERS Safety Report 9449918 (Version 1)
Quarter: 2013Q3

REPORT INFORMATION
  Report Type: Spontaneous
  Country: US (occurrence: US)
  Receive Date: 20130809
  Receipt Date: 20130809
  Transmission Date: 20140515
  Serious: Yes (Other)
  Sender: FDA-Public Use
  Company Number: US-PFIZER INC-2013230277

PATIENT
  Age: 86 Year
  Sex: Male

DRUGS (1)
  1. ADVIL [Suspect]
     Dosage: UNK

REACTIONS (5)
  - Fall [Unknown]
  - Joint injury [Unknown]
  - Osteoarthritis [Unknown]
  - Local swelling [Unknown]
  - Joint swelling [Unknown]
